FAERS Safety Report 7622397-1 (Version None)
Quarter: 2011Q3

REPORT INFORMATION
  Report Type: 
  Country: None (occurrence: None)
  Receive Date: 20110718
  Receipt Date: 20110718
  Transmission Date: 20111222
  Serious: Yes (Other)
  Sender: FDA-Public Use
  Company Number: None

PATIENT
  Sex: Male
  Weight: 36.2 kg

DRUGS (2)
  1. DEPAKOTE ER [Suspect]
     Indication: ENCEPHALOPATHY
     Dosage: 3 TIMES QD PO
     Route: 048
  2. DEPAKOTE ER [Suspect]
     Indication: EPILEPSY
     Dosage: 3 TIMES QD PO
     Route: 048

REACTIONS (3)
  - PRODUCT SUBSTITUTION ISSUE [None]
  - DISTURBANCE IN ATTENTION [None]
  - ABNORMAL BEHAVIOUR [None]
